FAERS Safety Report 8968179 (Version 1)
Quarter: 2012Q4

REPORT INFORMATION
  Report Type: 
  Country: US (occurrence: US)
  Receive Date: 20121218
  Receipt Date: 20121218
  Transmission Date: 20130627
  Serious: No
  Sender: FDA-Public Use
  Company Number: US-PFIZER INC-2012317150

PATIENT
  Age: 83 Year
  Sex: Male
  Weight: 83.45 kg

DRUGS (2)
  1. LYRICA [Suspect]
     Indication: NEUROPATHY
     Dosage: 100mg in morning, 100mg in afternoon, 200mg in evening
  2. CLONAZEPAM [Concomitant]
     Dosage: 1 mg, daily

REACTIONS (3)
  - Poor quality drug administered [Unknown]
  - Pain in extremity [Unknown]
  - Product size issue [Unknown]
